FAERS Safety Report 10913347 (Version 1)
Quarter: 2015Q1

REPORT INFORMATION
  Report Type: Spontaneous
  Country: US (occurrence: None)
  Receive Date: 20150310
  Receipt Date: 20150310
  Transmission Date: 20150721
  Serious: No
  Sender: FDA-Public Use
  Company Number: None

PATIENT
  Age: 57 Year
  Sex: Male

DRUGS (11)
  1. AMPYRA [Concomitant]
     Active Substance: DALFAMPRIDINE
  2. TRAMADOL [Concomitant]
     Active Substance: TRAMADOL
  3. ALLOPURINOL. [Concomitant]
     Active Substance: ALLOPURINOL
  4. WARFARIN [Concomitant]
     Active Substance: WARFARIN
  5. PREDNISONE. [Concomitant]
     Active Substance: PREDNISONE
  6. TEMAZEPAM. [Concomitant]
     Active Substance: TEMAZEPAM
  7. BENZONATATE. [Concomitant]
     Active Substance: BENZONATATE
  8. AMPYRA [Suspect]
     Active Substance: DALFAMPRIDINE
     Indication: MULTIPLE SCLEROSIS
     Route: 048
     Dates: start: 201404, end: 201405
  9. COLLERYS [Concomitant]
  10. METOPROLOL [Concomitant]
     Active Substance: METOPROLOL
  11. LISINOPRIL. [Concomitant]
     Active Substance: LISINOPRIL

REACTIONS (2)
  - Drug ineffective [None]
  - Therapy cessation [None]

NARRATIVE: CASE EVENT DATE: 20140801
